FAERS Safety Report 5670114-7 (Version None)
Quarter: 2008Q1

REPORT INFORMATION
  Report Type: 
  Country: None (occurrence: None)
  Receive Date: 20080317
  Receipt Date: 20080304
  Transmission Date: 20080703
  Serious: Yes (Death, Other)
  Sender: FDA-Public Use
  Company Number: ZA-AMGEN-UK259563

PATIENT
  Age: 65 Year
  Sex: Female

DRUGS (2)
  1. NEUPOGEN [Suspect]
     Indication: CHEMOTHERAPY
     Route: 058
  2. DOCETAXEL [Concomitant]
     Route: 065

REACTIONS (4)
  - ACUTE MYELOID LEUKAEMIA [None]
  - BLAST CELL CRISIS [None]
  - NEUTROPENIC SEPSIS [None]
  - SEPSIS [None]
